FAERS Safety Report 7258563-7 (Version None)
Quarter: 2011Q1

REPORT INFORMATION
  Report Type: 
  Country: None (occurrence: None)
  Receive Date: 20110129
  Receipt Date: 20100502
  Transmission Date: 20110831
  Serious: No
  Sender: FDA-Public Use
  Company Number: US-ABBOTT-08P-163-0458578-00

PATIENT
  Sex: Female
  Weight: 39.952 kg

DRUGS (10)
  1. MERCAPTOPURINE [Concomitant]
     Indication: CROHN'S DISEASE
     Route: 048
     Dates: start: 20080101
  2. FLAGYL [Concomitant]
     Indication: FISTULA
     Route: 048
     Dates: start: 20080101
  3. CIPRO [Concomitant]
     Indication: FISTULA
     Route: 048
     Dates: start: 20080401
  4. MIRALAX [Concomitant]
     Indication: CONSTIPATION
     Route: 048
     Dates: start: 20000101
  5. HUMIRA [Suspect]
     Indication: CROHN'S DISEASE
     Route: 058
     Dates: start: 20080401
  6. HUMIRA [Suspect]
     Route: 058
  7. MIRALAX [Concomitant]
     Indication: CROHN'S DISEASE
  8. MERCAPTOPURINE [Concomitant]
     Route: 048
     Dates: start: 20050101, end: 20070101
  9. ALLEGRA [Concomitant]
     Indication: SEASONAL ALLERGY
     Route: 048
     Dates: start: 20050101
  10. PROBIOTICS [Concomitant]
     Indication: CROHN'S DISEASE
     Route: 048
     Dates: start: 20040101

REACTIONS (1)
  - INJECTION SITE PAIN [None]
